FAERS Safety Report 8265042-7 (Version None)
Quarter: 2012Q2

REPORT INFORMATION
  Report Type: 
  Country: None (occurrence: None)
  Receive Date: 20120406
  Receipt Date: 20120403
  Transmission Date: 20120825
  Serious: Yes (Hospitalization)
  Sender: FDA-Public Use
  Company Number: PHHY2011CA63588

PATIENT
  Sex: Female

DRUGS (22)
  1. ASCORBIC ACID [Concomitant]
     Dosage: UNK UKN, UNK
  2. CRANBERRIES [Concomitant]
     Dosage: UNK UKN, UNK
  3. CELEBREX [Concomitant]
     Dosage: UNK UKN, UNK
  4. CYMBALTA [Concomitant]
     Dosage: UNK UKN, UNK
  5. VITAMIN D [Concomitant]
     Dosage: UNK UKN, UNK
  6. CALCIUM CARBONATE [Concomitant]
     Dosage: UNK UKN, UNK
  7. AMANTADINE HCL [Concomitant]
     Dosage: UNK UKN, UNK
  8. VITAMIN B COMPLEX CAP [Concomitant]
     Dosage: UNK UKN, UNK
  9. HORMONES [Concomitant]
     Dosage: UNK UKN, UNK
  10. ESTRADIOL [Concomitant]
     Dosage: UNK UKN, UNK
  11. MULTI-VITAMINS [Concomitant]
     Dosage: UNK UKN, UNK
  12. BACLOFEN [Concomitant]
     Dosage: UNK UKN, UNK
  13. ELAVIL [Concomitant]
     Dosage: UNK UKN, UNK
  14. RITALIN [Concomitant]
     Dosage: UNK UKN, UNK
  15. SIMVASTATIN [Concomitant]
     Dosage: UNK UKN, UNK
  16. GILENYA [Suspect]
     Indication: RELAPSING-REMITTING MULTIPLE SCLEROSIS
     Dosage: 0.5 MG, DAILY
     Route: 048
     Dates: start: 20110711, end: 20120402
  17. GILENYA [Suspect]
     Dosage: 0.5 MG, BID
     Route: 048
     Dates: start: 20110725
  18. PRILOSEC [Concomitant]
     Dosage: UNK UKN, UNK
  19. MORPHINE SULFATE [Concomitant]
     Dosage: UNK UKN, UNK
  20. TYLENOL [Concomitant]
     Dosage: 1000 MG, UNK
  21. PROMETRIUM [Concomitant]
     Dosage: UNK UKN, UNK
  22. FENTANYL [Concomitant]
     Dosage: UNK UKN, UNK

REACTIONS (14)
  - FATIGUE [None]
  - SOMNOLENCE [None]
  - OEDEMA PERIPHERAL [None]
  - NAUSEA [None]
  - DIZZINESS [None]
  - PAIN [None]
  - FEELING COLD [None]
  - FEMUR FRACTURE [None]
  - PERIPHERAL COLDNESS [None]
  - HEADACHE [None]
  - OVERDOSE [None]
  - FALL [None]
  - HIP FRACTURE [None]
  - EYE OEDEMA [None]
